FAERS Safety Report 7374729-X (Version None)
Quarter: 2011Q1

REPORT INFORMATION
  Report Type: 
  Country: None (occurrence: None)
  Receive Date: 20110325
  Receipt Date: 20100913
  Transmission Date: 20110831
  Serious: No
  Sender: FDA-Public Use
  Company Number: US-MYLANLABS-2010S1016749

PATIENT
  Age: 52 Year
  Sex: Female

DRUGS (1)
  1. FENTANYL-100 [Suspect]
     Indication: MULTIPLE SCLEROSIS
     Dosage: Q72H

REACTIONS (3)
  - MALAISE [None]
  - ERYTHEMA [None]
  - HEART RATE INCREASED [None]
